FAERS Safety Report 11943771 (Version 1)
Quarter: 2016Q1

REPORT INFORMATION
  Report Type: Spontaneous
  Country: US (occurrence: US)
  Receive Date: 20160125
  Receipt Date: 20160125
  Transmission Date: 20160526
  Serious: No
  Sender: FDA-Public Use
  Company Number: US-UNITED THERAPEUTICS-UNT-2015-013611

PATIENT
  Sex: Female
  Weight: 41.72 kg

DRUGS (3)
  1. TYVASO [Suspect]
     Active Substance: TREPROSTINIL
     Indication: PULMONARY ARTERIAL HYPERTENSION
     Dosage: 54 ?G, QID
     Dates: start: 20131031
  2. LETAIRIS [Concomitant]
     Active Substance: AMBRISENTAN
     Indication: PRODUCT USED FOR UNKNOWN INDICATION
  3. TYVASO [Suspect]
     Active Substance: TREPROSTINIL
     Dosage: 18-72 MICROGRAMS, QID

REACTIONS (7)
  - Therapy cessation [Unknown]
  - Visual acuity reduced [Unknown]
  - Malaise [Unknown]
  - Fatigue [Unknown]
  - Device issue [Unknown]
  - Muscular weakness [Unknown]
  - Scleroderma [Unknown]

NARRATIVE: CASE EVENT DATE: 2015
